FAERS Safety Report 10809639 (Version 1)
Quarter: 2015Q1

REPORT INFORMATION
  Report Type: Report from Study
  Country: US (occurrence: US)
  Receive Date: 20150217
  Receipt Date: 20150217
  Transmission Date: 20150721
  Serious: No
  Sender: FDA-Public Use
  Company Number: US-ABBVIE-14K-163-1208166-00

PATIENT
  Sex: Female

DRUGS (4)
  1. HUMIRA [Suspect]
     Active Substance: ADALIMUMAB
     Indication: CROHN^S DISEASE
     Dates: start: 20131119, end: 201402
  2. HUMIRA [Suspect]
     Active Substance: ADALIMUMAB
     Indication: ANAL ULCER
  3. HUMIRA [Suspect]
     Active Substance: ADALIMUMAB
     Indication: MOUTH ULCERATION
  4. PRILOSEC [Concomitant]
     Active Substance: OMEPRAZOLE MAGNESIUM
     Indication: PRODUCT USED FOR UNKNOWN INDICATION
     Dosage: EVERY DAY FOR ONE MONTH DURATION; ONLY A FEW TIMES A YEAR

REACTIONS (1)
  - Drug ineffective [Unknown]
